FAERS Safety Report 7637071-5 (Version None)
Quarter: 2011Q3

REPORT INFORMATION
  Report Type: 
  Country: None (occurrence: None)
  Receive Date: 20110726
  Receipt Date: 20110216
  Transmission Date: 20111222
  Serious: No
  Sender: FDA-Public Use
  Company Number: US-MYLANLABS-2011S1003384

PATIENT
  Age: 61 Year
  Sex: Male

DRUGS (4)
  1. BENEFIBER FIBER SUPPLEMENT [Concomitant]
     Route: 048
  2. VITAMIN B COMPLEX CAP [Concomitant]
     Route: 048
  3. OMEGA 3 /00931501/ [Concomitant]
     Route: 048
  4. PAROXETINE HCL [Suspect]
     Route: 048
     Dates: start: 20100101

REACTIONS (5)
  - DRUG EFFECT DECREASED [None]
  - MIDDLE INSOMNIA [None]
  - FEELING JITTERY [None]
  - ANXIETY [None]
  - HYPERGLYCAEMIA [None]
